FAERS Safety Report 5329869-3 (Version None)
Quarter: 2007Q2

REPORT INFORMATION
  Report Type: 
  Country: None (occurrence: None)
  Receive Date: 20070517
  Receipt Date: 20070517
  Transmission Date: 20071010
  Serious: Yes (Hospitalization)
  Sender: FDA-Public Use
  Company Number: None

PATIENT
  Age: 83 Year
  Sex: Male
  Weight: 95 kg

DRUGS (1)
  1. MAGNESIUM OXIDE [Suspect]
     Indication: BLOOD MAGNESIUM DECREASED
     Dosage: 300-400 MG BID TO TID PO
     Route: 048
     Dates: start: 20070420, end: 20070509

REACTIONS (6)
  - CARDIAC FAILURE CONGESTIVE [None]
  - DIARRHOEA [None]
  - ELECTROLYTE IMBALANCE [None]
  - HYPERKALAEMIA [None]
  - POLYURIA [None]
  - RENAL FAILURE ACUTE [None]
